FAERS Safety Report 23058245 (Version 1)
Quarter: 2023Q4

REPORT INFORMATION
  Report Type: Spontaneous
  Country: US (occurrence: US)
  Receive Date: 20231012
  Receipt Date: 20231012
  Transmission Date: 20240109
  Serious: No
  Sender: FDA-Public Use
  Company Number: US-drreddys-SPO/USA/23/0177006

PATIENT
  Age: 20 Year
  Sex: Female

DRUGS (1)
  1. ZENATANE [Suspect]
     Active Substance: ISOTRETINOIN
     Indication: Product used for unknown indication
     Dosage: RMA ISSUE DATE:18 APRIL 2023 05:08:59 PM 22 MAY 2023 02:49:29 PM 26 JUNE 2023 03:33:44 PM 27 JULY 20

REACTIONS (2)
  - Adverse drug reaction [Unknown]
  - Vision blurred [Unknown]
